FAERS Safety Report 6914164-9 (Version None)
Quarter: 2010Q3

REPORT INFORMATION
  Report Type: 
  Country: None (occurrence: None)
  Receive Date: 20100809
  Receipt Date: 20100730
  Transmission Date: 20110219
  Serious: Yes (Hospitalization)
  Sender: FDA-Public Use
  Company Number: A0747336A

PATIENT
  Age: 46 Year
  Sex: Male
  Weight: 111.4 kg

DRUGS (1)
  1. AVANDIA [Suspect]
     Dosage: 4MG TWICE PER DAY
     Dates: start: 20010101, end: 20060101

REACTIONS (7)
  - BALANCE DISORDER [None]
  - CHEST PAIN [None]
  - CONGESTIVE CARDIOMYOPATHY [None]
  - DIZZINESS [None]
  - DYSPNOEA [None]
  - MYOCARDIAL INFARCTION [None]
  - MYOCARDIAL ISCHAEMIA [None]
